FAERS Safety Report 10083238 (Version 1)
Quarter: 2014Q2

REPORT INFORMATION
  Report Type: Spontaneous
  Country: US (occurrence: None)
  Receive Date: 20140415
  Receipt Date: 20140415
  Transmission Date: 20141212
  Serious: No
  Sender: FDA-Public Use
  Company Number: None

PATIENT
  Age: 48 Year
  Sex: Female
  Weight: 55.34 kg

DRUGS (1)
  1. DULERA [Suspect]
     Indication: ASTHMA
     Dosage: 1 PUFF 1 TIME PER DAY ONCE DAILY INHALATION?
     Route: 055
     Dates: start: 20140107, end: 20140405

REACTIONS (6)
  - Fracture [None]
  - Chest pain [None]
  - Infection [None]
  - Asthma [None]
  - Condition aggravated [None]
  - Electrocardiogram abnormal [None]
